FAERS Safety Report 4293883-X (Version None)
Quarter: 2004Q1

REPORT INFORMATION
  Report Type: 
  Country: None (occurrence: None)
  Receive Date: 20040210
  Receipt Date: 20040127
  Transmission Date: 20041129
  Serious: Yes (Life-Threatening, Hospitalization)
  Sender: FDA-Public Use
  Company Number: 2004-BP-00210BP

PATIENT
  Age: 80 Year
  Sex: Female
  Weight: 75.3 kg

DRUGS (5)
  1. MOBIC [Suspect]
     Indication: OSTEOARTHRITIS
     Dosage: 7.5 MG (7.5 MG, 1 DAILY), PO
     Route: 048
     Dates: start: 20020101, end: 20030801
  2. LEVOTHYROID [Concomitant]
  3. LEXAPRO [Concomitant]
  4. SINGULAIR [Concomitant]
  5. ESTROPIPATE [Concomitant]

REACTIONS (2)
  - POST PROCEDURAL HAEMORRHAGE [None]
  - POSTOPERATIVE INFECTION [None]
